FAERS Safety Report 4893279-3 (Version None)
Quarter: 2006Q1

REPORT INFORMATION
  Report Type: 
  Country: None (occurrence: None)
  Receive Date: 20060124
  Receipt Date: 20060110
  Transmission Date: 20060701
  Serious: Yes (Other)
  Sender: FDA-Public Use
  Company Number: 8014272

PATIENT
  Sex: Female

DRUGS (5)
  1. KEPPRA [Suspect]
     Indication: CONVULSION
     Dosage: TRP
     Route: 064
     Dates: start: 20050605, end: 20051107
  2. KEPPRA [Suspect]
     Indication: CONVULSION
     Dosage: 1500 MG 2/D TRP
     Route: 064
     Dates: start: 20051108, end: 20051227
  3. GABAPENTIN [Suspect]
     Indication: CONVULSION
     Dosage: TRP
     Route: 064
  4. CLONAZEPAM [Suspect]
     Indication: CONVULSION
     Dosage: TRP
     Route: 064
  5. PRENATAL VITAMINS [Concomitant]

REACTIONS (4)
  - ACIDOSIS [None]
  - DRUG EXPOSURE DURING PREGNANCY [None]
  - ENZYME ABNORMALITY [None]
  - NEONATAL DISORDER [None]
